FAERS Safety Report 25563325 (Version 1)
Quarter: 2025Q3

REPORT INFORMATION
  Report Type: Report from Study
  Country: GB (occurrence: GB)
  Receive Date: 20250716
  Receipt Date: 20250716
  Transmission Date: 20251020
  Serious: Yes (Other)
  Sender: AUROBINDO
  Company Number: GB-UCBSA-2019032594

PATIENT

DRUGS (1)
  1. LEVETIRACETAM [Suspect]
     Active Substance: LEVETIRACETAM
     Indication: Epilepsy
     Route: 065

REACTIONS (7)
  - Psychiatric symptom [Unknown]
  - Coordination abnormal [Unknown]
  - Tremor [Unknown]
  - Gastrointestinal disorder [Unknown]
  - Insomnia [Unknown]
  - Sedation [Unknown]
  - Rash [Unknown]
